FAERS Safety Report 18774552 (Version 2)
Quarter: 2021Q2

REPORT INFORMATION
  Report Type: Spontaneous
  Country: CA (occurrence: CA)
  Receive Date: 20210122
  Receipt Date: 20210518
  Transmission Date: 20210717
  Serious: Yes (Other)
  Sender: FDA-Public Use
  Company Number: NVSC2021CA008540

PATIENT
  Age: 59 Year
  Sex: Female

DRUGS (5)
  1. SANDOSTATIN LAR DEPOT [Suspect]
     Active Substance: OCTREOTIDE ACETATE
     Indication: IMPAIRED GASTRIC EMPTYING
     Dosage: UNK
     Route: 030
  2. DEXILANT [Concomitant]
     Active Substance: DEXLANSOPRAZOLE
     Indication: PRODUCT USED FOR UNKNOWN INDICATION
     Dosage: UNK
     Route: 065
  3. SANDOSTATIN LAR DEPOT [Suspect]
     Active Substance: OCTREOTIDE ACETATE
     Indication: BREAST CANCER
     Dosage: 20 MG, QMO
     Route: 030
  4. SANDOSTATIN LAR DEPOT [Suspect]
     Active Substance: OCTREOTIDE ACETATE
  5. MORPHINE SULFATE. [Suspect]
     Active Substance: MORPHINE SULFATE
     Indication: PRODUCT USED FOR UNKNOWN INDICATION
     Dosage: UNK
     Route: 065

REACTIONS (22)
  - Headache [Recovered/Resolved]
  - Abdominal pain [Recovered/Resolved]
  - Pancreatitis [Recovered/Resolved]
  - Peripheral swelling [Recovered/Resolved]
  - Drug ineffective [Recovered/Resolved]
  - Blood pressure increased [Recovered/Resolved]
  - Diarrhoea [Recovered/Resolved]
  - Abdominal pain upper [Recovered/Resolved]
  - Constipation [Recovered/Resolved]
  - Injection site pain [Recovered/Resolved]
  - Injection site hypoaesthesia [Recovered/Resolved]
  - Diabetes mellitus [Recovered/Resolved]
  - Muscle spasms [Recovered/Resolved]
  - Breast mass [Recovered/Resolved]
  - Dyspnoea [Recovered/Resolved]
  - Hypersensitivity [Recovered/Resolved]
  - Nausea [Recovered/Resolved]
  - Rash [Recovered/Resolved]
  - Product use in unapproved indication [Recovered/Resolved]
  - Cholelithiasis [Recovered/Resolved]
  - Vomiting [Recovered/Resolved]
  - Off label use [Recovered/Resolved]
